FAERS Safety Report 7093666-1 (Version None)
Quarter: 2010Q4

REPORT INFORMATION
  Report Type: 
  Country: None (occurrence: None)
  Receive Date: 20101110
  Receipt Date: 20101101
  Transmission Date: 20110411
  Serious: Yes (Hospitalization)
  Sender: FDA-Public Use
  Company Number: US-US-EMD SERONO, INC.-7025575

PATIENT
  Sex: Female

DRUGS (1)
  1. REBIF [Suspect]
     Indication: PRODUCT USED FOR UNKNOWN INDICATION
     Route: 058
     Dates: start: 20090430

REACTIONS (7)
  - BLOOD POTASSIUM DECREASED [None]
  - FATIGUE [None]
  - INTESTINAL POLYP [None]
  - OXYGEN SATURATION DECREASED [None]
  - PYREXIA [None]
  - RENAL MASS [None]
  - VOMITING [None]
